FAERS Safety Report 15151404 (Version 4)
Quarter: 2018Q3

REPORT INFORMATION
  Report Type: Spontaneous
  Country: US (occurrence: US)
  Receive Date: 20180716
  Receipt Date: 20180924
  Transmission Date: 20181010
  Serious: Yes (Death, Hospitalization)
  Sender: FDA-Public Use
  Company Number: US-ACTELION-A-NJ2018-175228

PATIENT
  Age: 61 Year
  Sex: Female
  Weight: 40.36 kg

DRUGS (3)
  1. NICARDIPINE [Concomitant]
     Active Substance: NICARDIPINE
  2. AMLODIPINE [Concomitant]
     Active Substance: AMLODIPINE BESYLATE
  3. OPSUMIT [Suspect]
     Active Substance: MACITENTAN
     Indication: PULMONARY HYPERTENSION
     Dosage: 10 MG, QD
     Route: 048

REACTIONS (12)
  - Fluid retention [Unknown]
  - Hydrocephalus [Unknown]
  - Cerebral haemorrhage [Unknown]
  - Dependence on respirator [Recovered/Resolved]
  - Renal disorder [Unknown]
  - Cerebrovascular accident [Unknown]
  - Dialysis [Unknown]
  - Thrombosis [Unknown]
  - Cerebral endovascular aneurysm repair [Unknown]
  - Subarachnoid haemorrhage [Fatal]
  - Intracranial aneurysm [Unknown]
  - Hypertension [Unknown]

NARRATIVE: CASE EVENT DATE: 20180718
